FAERS Safety Report 9209457 (Version 1)
Quarter: 2013Q2

REPORT INFORMATION
  Report Type: Spontaneous
  Country: US (occurrence: None)
  Receive Date: 20130403
  Receipt Date: 20130403
  Transmission Date: 20140414
  Serious: Yes (Other)
  Sender: FDA-Public Use
  Company Number: None

PATIENT
  Age: 56 Year
  Sex: Female
  Weight: 81.65 kg

DRUGS (1)
  1. CARBAMAZEPIN [Suspect]
     Indication: CONVULSION
     Dosage: 200 MG 1 TAB 2X
     Dates: start: 20130214

REACTIONS (3)
  - Tremor [None]
  - Rash macular [None]
  - Pruritus [None]
